FAERS Safety Report 5570546-1 (Version None)
Quarter: 2007Q4

REPORT INFORMATION
  Report Type: 
  Country: None (occurrence: None)
  Receive Date: 20071219
  Receipt Date: 20071211
  Transmission Date: 20080405
  Serious: Yes (Other)
  Sender: FDA-Public Use
  Company Number: 163-21880-07120678

PATIENT

DRUGS (1)
  1. REVLIMID [Suspect]
     Indication: CENTRAL NERVOUS SYSTEM NEOPLASM
     Dosage: ONCE DAILY FOR 3 WEEKS, 1 WK REST PERIOD, ORAL
     Route: 048

REACTIONS (14)
  - CONVULSION [None]
  - DIARRHOEA [None]
  - DRUG TOXICITY [None]
  - FATIGUE [None]
  - HERPES ZOSTER OPHTHALMIC [None]
  - HYPOKALAEMIA [None]
  - HYPOPHOSPHATAEMIA [None]
  - NAUSEA [None]
  - NEUTROPENIA [None]
  - RETINAL VEIN THROMBOSIS [None]
  - THROMBOCYTOPENIA [None]
  - URINARY TRACT INFECTION [None]
  - VENOUS THROMBOSIS [None]
  - VOMITING [None]
